FAERS Safety Report 10563392 (Version 1)
Quarter: 2014Q4

REPORT INFORMATION
  Report Type: Spontaneous
  Country: US (occurrence: None)
  Receive Date: 20141103
  Receipt Date: 20141103
  Transmission Date: 20150529
  Serious: Yes (Other)
  Sender: FDA-Public Use
  Company Number: None

PATIENT
  Age: 60 Year
  Sex: Male
  Weight: 97.52 kg

DRUGS (3)
  1. LEVOFLOXACIN 500MG [Suspect]
     Active Substance: LEVOFLOXACIN
     Indication: GASTROINTESTINAL BACTERIAL INFECTION
     Dosage: 500 MG, ONCE DAILY, TAKEN BY MOUTH
     Route: 048
     Dates: start: 20141028, end: 20141101
  2. LEVOFLOXACIN 500MG [Suspect]
     Active Substance: LEVOFLOXACIN
     Indication: BACTERIAL INFECTION
     Dosage: 500 MG, ONCE DAILY, TAKEN BY MOUTH
     Route: 048
     Dates: start: 20141028, end: 20141101
  3. LEVOFLOXACIN 500MG [Suspect]
     Active Substance: LEVOFLOXACIN
     Indication: PROSTATE INFECTION
     Dosage: 500 MG, ONCE DAILY, TAKEN BY MOUTH
     Route: 048
     Dates: start: 20141028, end: 20141101

REACTIONS (9)
  - Tendon injury [None]
  - Pain [None]
  - Condition aggravated [None]
  - Hypersensitivity [None]
  - Contraindicated drug administered [None]
  - Dyspnoea [None]
  - Cardiac disorder [None]
  - Tendon rupture [None]
  - Cauda equina syndrome [None]

NARRATIVE: CASE EVENT DATE: 20141028
